FAERS Safety Report 8809015 (Version 1)
Quarter: 2012Q4

REPORT INFORMATION
  Report Type: 
  Country: US (occurrence: US)
  Receive Date: 20120926
  Receipt Date: 20120926
  Transmission Date: 20130627
  Serious: No
  Sender: FDA-Public Use
  Company Number: US-PFIZER INC-2012235042

PATIENT
  Age: 67 Year
  Sex: Female
  Weight: 47.62 kg

DRUGS (4)
  1. PREMARIN [Suspect]
     Indication: HORMONE REPLACEMENT THERAPY
     Dosage: UNK
     Dates: start: 1985, end: 20120917
  2. PREMARIN [Suspect]
     Dosage: 1.25 mg, 1x/day
  3. AMLODIPINE [Concomitant]
     Indication: HYPERTENSION
     Dosage: 10 mg, UNK
  4. ATENOLOL [Concomitant]
     Indication: HYPERTENSION
     Dosage: 50 mg, 2x/day

REACTIONS (6)
  - Blood oestrogen decreased [Unknown]
  - Anxiety [Not Recovered/Not Resolved]
  - Fatigue [Unknown]
  - Hot flush [Recovered/Resolved]
  - Headache [Recovered/Resolved]
  - Malaise [Unknown]
